FAERS Safety Report 4751493-1 (Version None)
Quarter: 2005Q3

REPORT INFORMATION
  Report Type: 
  Country: None (occurrence: None)
  Receive Date: 20050824
  Receipt Date: 20050311
  Transmission Date: 20060218
  Serious: Yes (Hospitalization)
  Sender: FDA-Public Use
  Company Number: US-MERCK-0503USA02631

PATIENT
  Age: 73 Year
  Sex: Male
  Weight: 96 kg

DRUGS (4)
  1. VIOXX [Suspect]
     Indication: ARTHRALGIA
     Route: 048
     Dates: start: 19990101, end: 20040923
  2. COLCHICINE [Concomitant]
     Indication: NEUROPATHY
     Route: 065
  3. HYDROCODONE HYDROCHLORIDE [Concomitant]
     Indication: PAIN IN EXTREMITY
     Route: 065
  4. HYDROCODONE HYDROCHLORIDE [Concomitant]
     Route: 065

REACTIONS (6)
  - BLOOD CHOLESTEROL INCREASED [None]
  - DYSPEPSIA [None]
  - GASTROOESOPHAGEAL REFLUX DISEASE [None]
  - MYOCARDIAL INFARCTION [None]
  - PARAPHILIA [None]
  - STOMACH DISCOMFORT [None]
